FAERS Safety Report 20767368 (Version 1)
Quarter: 2022Q2

REPORT INFORMATION
  Report Type: Spontaneous
  Country: US (occurrence: None)
  Receive Date: 20220429
  Receipt Date: 20220429
  Transmission Date: 20220721
  Serious: No
  Sender: FDA-Public Use
  Company Number: 2022A165421

PATIENT
  Sex: Female

DRUGS (1)
  1. PULMICORT TURBUHALER [Suspect]
     Active Substance: BUDESONIDE
     Indication: COVID-19
     Dosage: 180 MCG, 2 PUFFS BID
     Route: 055

REACTIONS (8)
  - Product use issue [Unknown]
  - Device use confusion [Unknown]
  - Dyspnoea [Unknown]
  - Gait disturbance [Unknown]
  - Cough [Unknown]
  - Aphonia [Unknown]
  - Dyspnoea exertional [Unknown]
  - Palpitations [Unknown]
